FAERS Safety Report 5406107-4 (Version None)
Quarter: 2007Q3

REPORT INFORMATION
  Report Type: 
  Country: None (occurrence: None)
  Receive Date: 20070802
  Receipt Date: 20070725
  Transmission Date: 20080115
  Serious: Yes (Death, Hospitalization, Other)
  Sender: FDA-Public Use
  Company Number: 2007AL003025

PATIENT
  Age: 91 Year
  Sex: Female

DRUGS (4)
  1. DICLOFENAC SODIUM [Suspect]
     Indication: BACK PAIN
     Dosage: 50 MG; BID;
     Dates: start: 20070625, end: 20070709
  2. PARACETAMOL [Concomitant]
  3. TRAMADOL HCL [Concomitant]
  4. CARBIMAZOLE [Concomitant]

REACTIONS (2)
  - GASTRIC ULCER PERFORATION [None]
  - PERITONITIS [None]
